FAERS Safety Report 5758903-1 (Version None)
Quarter: 2008Q2

REPORT INFORMATION
  Report Type: 
  Country: None (occurrence: None)
  Receive Date: 20080604
  Receipt Date: 20080602
  Transmission Date: 20081010
  Serious: Yes (Other)
  Sender: FDA-Public Use
  Company Number: CHNY2008GB02129

PATIENT
  Age: 45 Year
  Sex: Female

DRUGS (2)
  1. LAMISIL [Suspect]
     Indication: TINEA PEDIS
     Dosage: SINGLE APPLICATION ON BOTH FEET
     Route: 061
     Dates: start: 20060824, end: 20060824
  2. CLOTRIMAZOLE [Concomitant]

REACTIONS (7)
  - APPLICATION SITE REACTION [None]
  - ERYTHEMA [None]
  - OEDEMA PERIPHERAL [None]
  - PRURITUS [None]
  - SEPSIS [None]
  - SKIN INFECTION [None]
  - SKIN IRRITATION [None]
